FAERS Safety Report 7656391-1 (Version None)
Quarter: 2011Q3

REPORT INFORMATION
  Report Type: 
  Country: None (occurrence: None)
  Receive Date: 20110804
  Receipt Date: 20110729
  Transmission Date: 20111222
  Serious: Yes (Other)
  Sender: FDA-Public Use
  Company Number: US-GLAXOSMITHKLINE-A0939107A

PATIENT
  Age: 71 Year
  Sex: Male

DRUGS (9)
  1. NEXAVAR [Concomitant]
  2. ZOFRAN [Suspect]
     Indication: PROPHYLAXIS OF NAUSEA AND VOMITING
     Route: 048
     Dates: start: 20110715
  3. CASODEX [Concomitant]
  4. PROPRANOLOL [Concomitant]
  5. PRAVASTATIN [Concomitant]
  6. INSULIN [Concomitant]
  7. LACTULOSE [Concomitant]
  8. TRAMADOL HCL [Suspect]
     Indication: PRODUCT USED FOR UNKNOWN INDICATION
     Route: 065
  9. EFFEXOR [Concomitant]

REACTIONS (2)
  - DYSTONIA [None]
  - OCULOGYRIC CRISIS [None]
